FAERS Safety Report 24232883 (Version 1)
Quarter: 2024Q3

REPORT INFORMATION
  Report Type: Spontaneous
  Country: US (occurrence: None)
  Receive Date: 20240821
  Receipt Date: 20240821
  Transmission Date: 20241017
  Serious: No
  Sender: ASTRAZENECA
  Company Number: 2024A169456

PATIENT
  Sex: Female

DRUGS (1)
  1. FARXIGA [Suspect]
     Active Substance: DAPAGLIFLOZIN PROPANEDIOL
     Route: 048

REACTIONS (9)
  - Diarrhoea [Unknown]
  - Swelling [Unknown]
  - Peripheral swelling [Unknown]
  - Gait disturbance [Unknown]
  - Solar lentigo [Unknown]
  - Blood cholesterol increased [Unknown]
  - Abdominal distension [Unknown]
  - Flatulence [Unknown]
  - Intentional dose omission [Unknown]
